FAERS Safety Report 18110552 (Version 1)
Quarter: 2020Q3

REPORT INFORMATION
  Report Type: Spontaneous
  Country: US (occurrence: US)
  Receive Date: 20200804
  Receipt Date: 20200804
  Transmission Date: 20201103
  Serious: No
  Sender: FDA-Public Use
  Company Number: US-BAYER-2020-154308

PATIENT
  Age: 6 Year
  Sex: Female

DRUGS (1)
  1. KOGENATE FS [Suspect]
     Active Substance: ANTIHEMOPHILIC FACTOR, HUMAN RECOMBINANT
     Dosage: 1006 UN IV
     Route: 042

REACTIONS (2)
  - Contusion [None]
  - Accident [None]

NARRATIVE: CASE EVENT DATE: 20200725
